FAERS Safety Report 8239250-5 (Version None)
Quarter: 2012Q1

REPORT INFORMATION
  Report Type: 
  Country: None (occurrence: None)
  Receive Date: 20120328
  Receipt Date: 20120319
  Transmission Date: 20120608
  Serious: No
  Sender: FDA-Public Use
  Company Number: US-BIOGENIDEC-2012BI010269

PATIENT
  Age: 65 Year
  Sex: Female

DRUGS (2)
  1. TYSABRI [Suspect]
     Indication: MULTIPLE SCLEROSIS
     Route: 042
     Dates: start: 20080910
  2. TAMOXIFEN CITRATE [Concomitant]
     Indication: BREAST CANCER

REACTIONS (2)
  - MULTIPLE SCLEROSIS [None]
  - FATIGUE [None]
